FAERS Safety Report 13491927 (Version 2)
Quarter: 2017Q2

REPORT INFORMATION
  Report Type: Report from Study
  Country: BR (occurrence: BR)
  Receive Date: 20170427
  Receipt Date: 20170428
  Transmission Date: 20170830
  Serious: Yes (Death, Other)
  Sender: FDA-Public Use
  Company Number: PHHY2017BR062369

PATIENT
  Age: 76 Year
  Sex: Female

DRUGS (4)
  1. DIOVAN [Suspect]
     Active Substance: VALSARTAN
     Indication: HYPERTENSION
     Route: 065
  2. TAMOXIFENO [Concomitant]
     Indication: PRODUCT USED FOR UNKNOWN INDICATION
     Route: 065
  3. OPTI FREE [Suspect]
     Active Substance: PANCRELIPASE\TYROSINE
     Indication: PRODUCT USED FOR UNKNOWN INDICATION
     Route: 065
  4. DIOCOMB SI [Suspect]
     Active Substance: SIMVASTATIN\VALSARTAN
     Indication: PRODUCT USED FOR UNKNOWN INDICATION
     Route: 065

REACTIONS (4)
  - Immune system disorder [Unknown]
  - Breast cancer [Fatal]
  - Sepsis [Fatal]
  - Septic shock [Fatal]
